FAERS Safety Report 15114981 (Version 1)
Quarter: 2018Q3

REPORT INFORMATION
  Report Type: Other
  Country: TN (occurrence: TN)
  Receive Date: 20180706
  Receipt Date: 20180706
  Transmission Date: 20181010
  Serious: Yes (Life-Threatening, Other)
  Sender: FDA-Public Use
  Company Number: TN-DENTSPLY-2018SCDP000264

PATIENT

DRUGS (1)
  1. XYLOCAINE [Suspect]
     Active Substance: LIDOCAINE HYDROCHLORIDE
     Indication: PRODUCT USED FOR UNKNOWN INDICATION
     Dosage: MULTIPLES INSTILLATIONS

REACTIONS (3)
  - Toxicity to various agents [None]
  - Neurotoxicity [None]
  - Generalised tonic-clonic seizure [Recovered/Resolved]
